FAERS Safety Report 7460894-2 (Version None)
Quarter: 2011Q2

REPORT INFORMATION
  Report Type: 
  Country: None (occurrence: None)
  Receive Date: 20110505
  Receipt Date: 20110502
  Transmission Date: 20111010
  Serious: Yes (Hospitalization, Other)
  Sender: FDA-Public Use
  Company Number: FR-PFIZER INC-2011093452

PATIENT
  Age: 72 Year
  Sex: Female

DRUGS (8)
  1. SIMVASTATIN [Concomitant]
  2. COTAREG [Concomitant]
  3. NEURONTIN [Suspect]
     Dosage: 300 MG, 3X/DAY
     Route: 048
     Dates: start: 20060101, end: 20101109
  4. TARDYFERON [Concomitant]
  5. DAFALGAN [Concomitant]
  6. RIVOTRIL [Suspect]
     Dosage: 2.5 MG/ML, 1X/DAY
     Route: 048
     Dates: start: 20060101, end: 20101109
  7. PARIET [Concomitant]
  8. KARDEGIC [Concomitant]

REACTIONS (5)
  - PRESYNCOPE [None]
  - FALL [None]
  - HYPOTONIA [None]
  - TRACHEAL STENOSIS [None]
  - SLEEP APNOEA SYNDROME [None]
